FAERS Safety Report 7504841-3 (Version None)
Quarter: 2011Q2

REPORT INFORMATION
  Report Type: 
  Country: None (occurrence: None)
  Receive Date: 20110525
  Receipt Date: 20110516
  Transmission Date: 20111010
  Serious: Yes (Other)
  Sender: FDA-Public Use
  Company Number: US-AMGEN-USASP2011023663

PATIENT
  Age: 88 Year
  Sex: Male

DRUGS (4)
  1. DECITABINE [Concomitant]
  2. PROCRIT [Concomitant]
  3. NPLATE [Suspect]
     Indication: IDIOPATHIC THROMBOCYTOPENIC PURPURA
     Dosage: 4 A?G/KG, UNK
     Dates: start: 20110112
  4. NPLATE [Suspect]
     Dates: start: 20110101

REACTIONS (4)
  - CHRONIC MYELOMONOCYTIC LEUKAEMIA [None]
  - NEUTROPENIA [None]
  - NON-HODGKIN'S LYMPHOMA [None]
  - MONOCYTOSIS [None]
